FAERS Safety Report 8336786-3 (Version None)
Quarter: 2012Q2

REPORT INFORMATION
  Report Type: 
  Country: None (occurrence: None)
  Receive Date: 20120504
  Receipt Date: 20120424
  Transmission Date: 20120825
  Serious: Yes (Other)
  Sender: FDA-Public Use
  Company Number: AU-JNJFOC-20120306721

PATIENT
  Sex: Female
  Weight: 62 kg

DRUGS (9)
  1. INFLIXIMAB [Concomitant]
     Indication: PSORIASIS
     Route: 065
     Dates: start: 20090101, end: 20110101
  2. METHOTREXATE [Concomitant]
     Indication: PSORIATIC ARTHROPATHY
     Dosage: 5 -20 MG
     Route: 048
     Dates: start: 19950101
  3. METHOTREXATE [Concomitant]
     Indication: PSORIASIS
     Dosage: 5 -20 MG
     Route: 048
     Dates: start: 19950101
  4. EFALIZUMAB [Concomitant]
     Indication: PSORIASIS
     Route: 065
     Dates: start: 20050101, end: 20090101
  5. METHOTREXATE [Concomitant]
     Route: 048
     Dates: start: 20111129
  6. STELARA [Suspect]
     Indication: PSORIASIS
     Dosage: WEEK 0
     Route: 058
     Dates: start: 20111228
  7. STELARA [Suspect]
     Dosage: WEEK 4
     Route: 058
     Dates: start: 20120125
  8. CYCLOSPORINE [Concomitant]
     Indication: PSORIASIS
     Route: 065
     Dates: start: 20050113, end: 20051114
  9. METHOTREXATE [Concomitant]
     Route: 048
     Dates: start: 20111129

REACTIONS (1)
  - BREAST CANCER IN SITU [None]
